FAERS Safety Report 4523301-5 (Version None)
Quarter: 2004Q4

REPORT INFORMATION
  Report Type: 
  Country: None (occurrence: None)
  Receive Date: 20041209
  Receipt Date: 20041209
  Transmission Date: 20050328
  Serious: No
  Sender: FDA-Public Use
  Company Number: None

PATIENT
  Age: 48 Year
  Sex: Male
  Weight: 90 kg

DRUGS (10)
  1. VORICONAZOLE [Suspect]
     Indication: FUNGAEMIA
     Dosage: 540MG IV Q 12 HRS
     Route: 042
     Dates: start: 20041102
  2. VORICONAZOLE [Suspect]
     Dosage: 360MG IV Q 12 HRS
     Route: 042
     Dates: start: 20041103, end: 20041109
  3. CEFEPIME [Concomitant]
  4. DAPTOMYCIN [Concomitant]
  5. CELECOXIB [Concomitant]
  6. ENOXAPARIN SODIUM [Concomitant]
  7. FUROSEMIDE [Concomitant]
  8. GABAPENTIN [Concomitant]
  9. NOVOPENEM [Concomitant]
  10. CASPOFUNGIN [Concomitant]

REACTIONS (1)
  - NIGHTMARE [None]
